FAERS Safety Report 23551155 (Version 1)
Quarter: 2024Q1

REPORT INFORMATION
  Report Type: Spontaneous
  Country: JP (occurrence: JP)
  Receive Date: 20240222
  Receipt Date: 20240222
  Transmission Date: 20240409
  Serious: Yes (Other)
  Sender: FDA-Public Use
  Company Number: JP-002147023-NVSJ2024JP002287

PATIENT
  Age: 78 Year
  Sex: Male

DRUGS (2)
  1. ENTRESTO [Suspect]
     Active Substance: SACUBITRIL\VALSARTAN
     Indication: Hypertension
     Dosage: 200 MG
     Route: 048
     Dates: start: 20231016, end: 20240216
  2. HARNAL [Suspect]
     Active Substance: TAMSULOSIN HYDROCHLORIDE
     Indication: Product used for unknown indication
     Dosage: UNK
     Route: 048
     Dates: start: 20231016, end: 20240216

REACTIONS (1)
  - Thrombocytopenia [Unknown]

NARRATIVE: CASE EVENT DATE: 20240216
